FAERS Safety Report 8613344-4 (Version None)
Quarter: 2012Q3

REPORT INFORMATION
  Report Type: 
  Country: None (occurrence: None)
  Receive Date: 20120822
  Receipt Date: 20120629
  Transmission Date: 20120928
  Serious: No
  Sender: FDA-Public Use
  Company Number: US-009507513-1208USA004357

PATIENT

DRUGS (11)
  1. ARTHROTEC [Concomitant]
     Indication: PRODUCT USED FOR UNKNOWN INDICATION
     Dosage: UNK, UNKNOWN
  2. AMITIZA [Concomitant]
     Indication: PRODUCT USED FOR UNKNOWN INDICATION
     Dosage: UNK, UNKNOWN
  3. MIRALAX [Suspect]
     Indication: COLECTOMY
     Dosage: UNK, UNKNOWN
     Route: 048
     Dates: start: 20000101
  4. VITAMINS (UNSPECIFIED) [Concomitant]
     Indication: PRODUCT USED FOR UNKNOWN INDICATION
     Dosage: UNK, UNKNOWN
  5. MIRALAX [Suspect]
     Indication: MEDICAL OBSERVATION
  6. ALBUTEROL [Concomitant]
     Indication: ASTHMA
     Dosage: UNK, UNKNOWN
  7. IODINE [Concomitant]
     Indication: PRODUCT USED FOR UNKNOWN INDICATION
  8. MIRALAX [Suspect]
     Indication: CONSTIPATION
     Dosage: UNK, BID
     Route: 048
     Dates: start: 20100701
  9. SINGULAIR [Concomitant]
     Indication: ASTHMA
     Dosage: UNK, UNKNOWN
  10. FLEXERIL [Concomitant]
     Indication: PRODUCT USED FOR UNKNOWN INDICATION
     Dosage: UNK, UNKNOWN
  11. OMEGA-3-ACID ETHYL ESTERS [Concomitant]
     Indication: PRODUCT USED FOR UNKNOWN INDICATION
     Dosage: UNK, UNKNOWN

REACTIONS (3)
  - INCORRECT DRUG ADMINISTRATION DURATION [None]
  - DIARRHOEA [None]
  - INCORRECT DRUG ADMINISTRATION RATE [None]
